FAERS Safety Report 11911667 (Version 2)
Quarter: 2016Q1

REPORT INFORMATION
  Report Type: Spontaneous
  Country: US (occurrence: US)
  Receive Date: 20160112
  Receipt Date: 20160112
  Transmission Date: 20160526
  Serious: No
  Sender: FDA-Public Use
  Company Number: US-PIERRE FABRE-1046416

PATIENT
  Age: 6 Month
  Sex: Female
  Weight: 6.3 kg

DRUGS (2)
  1. HEMANGEOL [Suspect]
     Active Substance: PROPRANOLOL HYDROCHLORIDE
     Indication: HAEMANGIOMA
     Route: 048
     Dates: start: 20150922
  2. ALBUTEROL. [Concomitant]
     Active Substance: ALBUTEROL
     Route: 055
     Dates: start: 20151030

REACTIONS (6)
  - Nasopharyngitis [Unknown]
  - Rash [Recovered/Resolved]
  - Restlessness [Unknown]
  - Cough [Recovered/Resolved]
  - Off label use [Unknown]
  - Bronchitis [Unknown]

NARRATIVE: CASE EVENT DATE: 201509
